FAERS Safety Report 10166292 (Version 3)
Quarter: 2014Q2

REPORT INFORMATION
  Report Type: Spontaneous
  Country: NG (occurrence: NG)
  Receive Date: 20140512
  Receipt Date: 20140611
  Transmission Date: 20141212
  Serious: Yes (Other)
  Sender: FDA-Public Use
  Company Number: NG-RANBAXY-2014RR-81001

PATIENT
  Age: 42 Year
  Sex: Female

DRUGS (8)
  1. PARACETAMOL [Suspect]
     Indication: PYREXIA
     Dosage: 1000 MG, SINGLE
     Route: 048
     Dates: start: 201212
  2. PARACETAMOL [Suspect]
     Indication: PYREXIA
     Dosage: 600 MG
     Route: 030
     Dates: start: 201303
  3. DICLOFENAC [Interacting]
     Indication: PYREXIA
     Dosage: 50 MG, SINGLE
     Route: 048
  4. ZIDOVUDINE [Interacting]
     Indication: HIV INFECTION
     Dosage: 150 MG, DAILY
     Route: 065
  5. NEVIRAPINE [Interacting]
     Indication: HIV INFECTION
     Dosage: 200 MG, BID
     Route: 065
  6. CO-TRIMOXAZOLE [Concomitant]
     Indication: PRODUCT USED FOR UNKNOWN INDICATION
     Dosage: UNK
     Route: 065
  7. CEFTRIAXONE [Concomitant]
     Indication: PLEURAL EFFUSION
     Dosage: UNK
     Route: 042
  8. METRONIDAZOLE [Concomitant]
     Indication: PLEURAL EFFUSION
     Dosage: UNK
     Route: 042

REACTIONS (3)
  - Generalised tonic-clonic seizure [Recovered/Resolved]
  - Hyperhidrosis [Recovered/Resolved]
  - Drug interaction [Recovered/Resolved]
